FAERS Safety Report 20544800 (Version 1)
Quarter: 2022Q1

REPORT INFORMATION
  Report Type: Spontaneous
  Country: US (occurrence: US)
  Receive Date: 20220303
  Receipt Date: 20220303
  Transmission Date: 20220424
  Serious: No
  Sender: FDA-Public Use
  Company Number: US-AMGEN-USASP2022034016

PATIENT

DRUGS (2)
  1. NEUPOGEN [Suspect]
     Active Substance: FILGRASTIM
     Indication: Peripheral arterial occlusive disease
     Dosage: UNK (EVERY 72 H AT APPROXIMATELY 10 MCG/KG FOR UP TO 10 DOSES)
     Route: 058
  2. NEUPOGEN [Suspect]
     Active Substance: FILGRASTIM
     Indication: Off label use

REACTIONS (3)
  - Neovascularisation [Unknown]
  - Fibrinolysis [Unknown]
  - Off label use [Unknown]
